FAERS Safety Report 16964412 (Version 1)
Quarter: 2019Q4

REPORT INFORMATION
  Report Type: Spontaneous
  Country: US (occurrence: US)
  Receive Date: 20190909
  Receipt Date: 20190909
  Transmission Date: 20200122
  Serious: No
  Sender: FDA-Public Use
  Company Number: None

PATIENT
  Age: 66 Year
  Sex: Female

DRUGS (1)
  1. OCALIVA [Suspect]
     Active Substance: OBETICHOLIC ACID
     Indication: PRIMARY BILIARY CHOLANGITIS
     Route: 048
     Dates: start: 20190621

REACTIONS (5)
  - Abdominal pain [None]
  - Eczema [None]
  - Pruritus [None]
  - Constipation [None]
  - Arthralgia [None]

NARRATIVE: CASE EVENT DATE: 2019
